FAERS Safety Report 14662003 (Version 1)
Quarter: 2018Q1

REPORT INFORMATION
  Report Type: Spontaneous
  Country: FR (occurrence: FR)
  Receive Date: 20180320
  Receipt Date: 20180320
  Transmission Date: 20180509
  Serious: Yes (Other)
  Sender: FDA-Public Use
  Company Number: FR-MERCK KGAA-2044170

PATIENT
  Age: 50 Year
  Sex: Female

DRUGS (1)
  1. NOVOTHYROX [Suspect]
     Active Substance: LEVOTHYROXINE SODIUM
     Indication: PRODUCT USED FOR UNKNOWN INDICATION

REACTIONS (24)
  - Back pain [None]
  - Irritability [None]
  - Hypokinesia [None]
  - Hyperhidrosis [None]
  - Depression [None]
  - Arthralgia [None]
  - Family stress [None]
  - Social avoidant behaviour [None]
  - Muscle spasms [None]
  - Anger [None]
  - Suicidal ideation [None]
  - Musculoskeletal stiffness [None]
  - Apathy [None]
  - Alopecia [None]
  - Dizziness [None]
  - Weight increased [None]
  - Loss of libido [None]
  - Joint swelling [None]
  - Mood swings [None]
  - Palpitations [None]
  - Insomnia [None]
  - Hot flush [None]
  - Fatigue [None]
  - Oedema peripheral [None]

NARRATIVE: CASE EVENT DATE: 201704
